FAERS Safety Report 7092318-1 (Version None)
Quarter: 2010Q4

REPORT INFORMATION
  Report Type: 
  Country: None (occurrence: None)
  Receive Date: 20101109
  Receipt Date: 20101105
  Transmission Date: 20110411
  Serious: Yes (Hospitalization)
  Sender: FDA-Public Use
  Company Number: US-BRISTOL-MYERS SQUIBB COMPANY-15370083

PATIENT
  Age: 66 Year
  Sex: Male
  Weight: 74 kg

DRUGS (11)
  1. CISPLATIN [Suspect]
     Dates: start: 20100817, end: 20100830
  2. BLEOMYCIN SULFATE [Suspect]
     Dosage: 1DF:30 UNITS
     Dates: start: 20100817, end: 20100830
  3. ETOPOSIDE [Suspect]
     Dates: start: 20100817, end: 20100830
  4. RADIATION THERAPY [Suspect]
     Dosage: 1DF:37.5 GY/15FRACTIONS ( 5 DAYS A WEEK* 3 WEEK)
     Dates: start: 20100628
  5. VICODIN [Concomitant]
  6. PHENERGAN [Concomitant]
     Dosage: 75MG
  7. DECADRON [Concomitant]
  8. PRILOSEC [Concomitant]
  9. KEPPRA [Concomitant]
  10. ATIVAN [Concomitant]
  11. ZOFRAN [Concomitant]
     Route: 042

REACTIONS (6)
  - FATIGUE [None]
  - GRANULOCYTE COUNT DECREASED [None]
  - HYPONATRAEMIA [None]
  - NAUSEA [None]
  - NEUTROPHIL COUNT DECREASED [None]
  - WHITE BLOOD CELL COUNT DECREASED [None]
